FAERS Safety Report 6936299-7 (Version None)
Quarter: 2010Q3

REPORT INFORMATION
  Report Type: 
  Country: None (occurrence: None)
  Receive Date: 20100823
  Receipt Date: 20100813
  Transmission Date: 20110219
  Serious: Yes (Hospitalization)
  Sender: FDA-Public Use
  Company Number: PL-PFIZER INC-2008093807

PATIENT
  Age: 67 Year
  Sex: Female
  Weight: 59 kg

DRUGS (8)
  1. ERLOTINIB HYDROCHLORIDE [Suspect]
     Indication: NON-SMALL CELL LUNG CANCER METASTATIC
     Route: 048
     Dates: start: 20080904, end: 20081020
  2. SUNITINIB MALATE [Suspect]
     Indication: NON-SMALL CELL LUNG CANCER
     Dosage: 37.5 MG, 1X/DAY
     Route: 048
     Dates: start: 20080904, end: 20081020
  3. KETOPROFEN [Suspect]
     Route: 048
     Dates: start: 20080826, end: 20081020
  4. ENALAPRIL MALEATE [Concomitant]
     Indication: HYPERTENSION
     Route: 048
     Dates: end: 20081020
  5. INDAPAMIDE [Concomitant]
     Indication: HYPERTENSION
     Dates: end: 20081020
  6. BISOPROLOL [Concomitant]
     Indication: HYPERTENSION
     Route: 048
     Dates: start: 20081004
  7. POTASSIUM CHLORIDE [Concomitant]
     Indication: PROPHYLAXIS
  8. OMEPRAZOLE [Concomitant]
     Indication: PROPHYLAXIS
     Dates: start: 20080827

REACTIONS (2)
  - GASTRIC HAEMORRHAGE [None]
  - MYOCARDIAL INFARCTION [None]
